FAERS Safety Report 22107259 (Version 1)
Quarter: 2023Q1

REPORT INFORMATION
  Report Type: Report from Study
  Country: US (occurrence: US)
  Receive Date: 20230317
  Receipt Date: 20230317
  Transmission Date: 20230417
  Serious: Yes (Other)
  Sender: FDA-Public Use
  Company Number: US-ABBVIE-4311649

PATIENT
  Age: 36 Year
  Sex: Female

DRUGS (2)
  1. HUMIRA [Suspect]
     Active Substance: ADALIMUMAB
     Indication: Ankylosing spondylitis
     Dosage: CITRATE FREE
     Route: 058
  2. HUMIRA [Suspect]
     Active Substance: ADALIMUMAB
     Dosage: CITRATE FREE
     Route: 058

REACTIONS (8)
  - Knee arthroplasty [Unknown]
  - Rotator cuff syndrome [Unknown]
  - Knee arthroplasty [Unknown]
  - Product preparation error [Unknown]
  - Seasonal allergy [Unknown]
  - Insomnia [Unknown]
  - Sacroiliitis [Unknown]
  - Pain [Unknown]

NARRATIVE: CASE EVENT DATE: 20080317
